FAERS Safety Report 20441278 (Version 1)
Quarter: 2022Q1

REPORT INFORMATION
  Report Type: Spontaneous
  Country: NL (occurrence: NL)
  Receive Date: 20220208
  Receipt Date: 20220208
  Transmission Date: 20220424
  Serious: Yes (Other)
  Sender: FDA-Public Use
  Company Number: NL-RECORDATI RARE DISEASE INC.-2022000359

PATIENT

DRUGS (2)
  1. CYSTADROPS [Suspect]
     Active Substance: CYSTEAMINE HYDROCHLORIDE
     Indication: Product used for unknown indication
     Route: 047
  2. CYSTADROPS [Suspect]
     Active Substance: CYSTEAMINE HYDROCHLORIDE
     Dosage: LESS DROPS
     Route: 047
     Dates: end: 202201

REACTIONS (4)
  - Corneal neovascularisation [Unknown]
  - Photophobia [Unknown]
  - Loss of personal independence in daily activities [Unknown]
  - Eye pain [Unknown]
